FAERS Safety Report 4295062-9 (Version None)
Quarter: 2004Q1

REPORT INFORMATION
  Report Type: 
  Country: None (occurrence: None)
  Receive Date: 20040213
  Receipt Date: 20040129
  Transmission Date: 20041129
  Serious: Yes (Other)
  Sender: FDA-Public Use
  Company Number: 204465

PATIENT
  Age: 53 Year
  Sex: Female

DRUGS (11)
  1. XOLAIR [Suspect]
     Indication: ASTHMA
     Dosage: 300 MG, Q2W, SUBCUTANEOUS
     Route: 058
     Dates: start: 20031208
  2. LISINOPRIL [Concomitant]
  3. PRILOSEC [Concomitant]
  4. ZOCOR [Concomitant]
  5. PREDNISONE [Concomitant]
  6. PAXIL [Concomitant]
  7. ADVAIR (SALMETEROL XINAFOATE, FLUTICASONE PROPIONATE) [Concomitant]
  8. CALCIUM GLUCONATE [Concomitant]
  9. PREMARIN [Concomitant]
  10. FLONASE [Concomitant]
  11. SINGULAIR (MONTELUKAS SODIUM) [Concomitant]

REACTIONS (6)
  - ANGIONEUROTIC OEDEMA [None]
  - DYSPNOEA [None]
  - RASH PRURITIC [None]
  - SWOLLEN TONGUE [None]
  - UPPER RESPIRATORY TRACT INFECTION [None]
  - URINARY TRACT INFECTION [None]
